FAERS Safety Report 25616889 (Version 2)
Quarter: 2025Q3

REPORT INFORMATION
  Report Type: Spontaneous
  Country: US (occurrence: US)
  Receive Date: 20250729
  Receipt Date: 20250822
  Transmission Date: 20251020
  Serious: Yes (Life-Threatening, Other)
  Sender: AUROBINDO
  Company Number: US-MLMSERVICE-20250711-PI574112-00034-1

PATIENT
  Age: 80 Year
  Sex: Male

DRUGS (2)
  1. AMIODARONE HYDROCHLORIDE [Suspect]
     Active Substance: AMIODARONE HYDROCHLORIDE
     Indication: Heart failure with reduced ejection fraction
     Dosage: 100 MILLIGRAM, ONCE A DAY
     Route: 065
  2. AMIODARONE HYDROCHLORIDE [Suspect]
     Active Substance: AMIODARONE HYDROCHLORIDE
     Indication: Ventricular tachycardia

REACTIONS (6)
  - Decompensated hypothyroidism [Recovering/Resolving]
  - Pulmonary embolism [Recovering/Resolving]
  - Atrioventricular block first degree [Recovering/Resolving]
  - Septic shock [Recovering/Resolving]
  - Cardiogenic shock [Recovering/Resolving]
  - Encephalopathy [Recovering/Resolving]
